FAERS Safety Report 10972695 (Version 2)
Quarter: 2015Q2

REPORT INFORMATION
  Report Type: Spontaneous
  Country: US (occurrence: US)
  Receive Date: 20150331
  Receipt Date: 20150525
  Transmission Date: 20150821
  Serious: No
  Sender: FDA-Public Use
  Company Number: US-JNJFOC-20140407379

PATIENT
  Sex: Male

DRUGS (2)
  1. RISPERDAL [Suspect]
     Active Substance: RISPERIDONE
     Indication: HYPOMANIA
     Route: 048
     Dates: start: 2011, end: 2013
  2. RISPERDAL [Suspect]
     Active Substance: RISPERIDONE
     Indication: DEPRESSION
     Route: 048
     Dates: start: 2011, end: 2013

REACTIONS (7)
  - Discomfort [Unknown]
  - Musculoskeletal chest pain [Unknown]
  - Chest pain [Unknown]
  - Weight increased [Unknown]
  - Emotional distress [Unknown]
  - Gynaecomastia [Unknown]
  - Hyperprolactinaemia [Unknown]
